FAERS Safety Report 9324288 (Version 1)
Quarter: 2013Q2

REPORT INFORMATION
  Report Type: Spontaneous
  Country: US (occurrence: US)
  Receive Date: 20130603
  Receipt Date: 20130603
  Transmission Date: 20140414
  Serious: Yes (Other)
  Sender: FDA-Public Use
  Company Number: PHEH2013US011793

PATIENT
  Sex: Female

DRUGS (5)
  1. DIOVAN [Suspect]
     Indication: HYPERTENSION
     Dosage: 320 MG, QD
  2. NITROGLYCERIN [Concomitant]
     Indication: CARDIAC DISORDER
  3. JANUVIA [Concomitant]
     Indication: DIABETES MELLITUS
  4. VITAMINS [Concomitant]
  5. PRO-VISION [Concomitant]
     Indication: EYE DISORDER

REACTIONS (7)
  - Glaucoma [Unknown]
  - Macular degeneration [Unknown]
  - Visual acuity reduced [Unknown]
  - Dysgraphia [Unknown]
  - Anger [Unknown]
  - Hearing impaired [Unknown]
  - Blood pressure increased [Unknown]
